FAERS Safety Report 4889123-0 (Version None)
Quarter: 2005Q4

REPORT INFORMATION
  Report Type: 
  Country: None (occurrence: None)
  Receive Date: 20051215
  Receipt Date: 20041221
  Transmission Date: 20060501
  Serious: Yes (Other)
  Sender: FDA-Public Use
  Company Number: 2004211631US

PATIENT
  Age: 47 Year
  Sex: Male
  Weight: 93.42 kg

DRUGS (4)
  1. BEXTRA [Suspect]
     Indication: OSTEOARTHRITIS
     Dosage: (10 MG)
  2. AMLODIPINE BESYLATE [Concomitant]
  3. ASPIRIN [Concomitant]
  4. OMEPRAZOLE [Concomitant]

REACTIONS (4)
  - CHILLS [None]
  - NIGHT SWEATS [None]
  - PYREXIA [None]
  - RASH VESICULAR [None]
